FAERS Safety Report 18882146 (Version 4)
Quarter: 2021Q2

REPORT INFORMATION
  Report Type: Other
  Country: KR (occurrence: KR)
  Receive Date: 20210212
  Receipt Date: 20210413
  Transmission Date: 20210717
  Serious: Yes (Hospitalization)
  Sender: FDA-Public Use
  Company Number: KR-ROCHE-2655478

PATIENT
  Age: 61 Year
  Sex: Female

DRUGS (32)
  1. SAMFENET [Suspect]
     Active Substance: TRASTUZUMAB
     Indication: BREAST CANCER
     Dosage: 704 MG
     Route: 042
     Dates: start: 20200718, end: 20200718
  2. NASERON [Concomitant]
     Active Substance: RAMOSETRON HYDROCHLORIDE
     Route: 048
     Dates: start: 20200718
  3. TRAMADOL HCL [Concomitant]
     Active Substance: TRAMADOL HYDROCHLORIDE
     Indication: ASTHENIA
     Route: 042
     Dates: start: 20200921, end: 20200921
  4. ZEMIMET SR [Concomitant]
     Indication: DIABETES MELLITUS
     Dosage: 50/500 MG
     Route: 048
  5. SAMFENET [Suspect]
     Active Substance: TRASTUZUMAB
     Route: 042
     Dates: start: 20210119
  6. SAMFENET [Suspect]
     Active Substance: TRASTUZUMAB
     Route: 042
     Dates: start: 20200808, end: 20201001
  7. SELINE [Concomitant]
     Indication: CHEMOTHERAPY
     Dosage: 400 MCG/ 10 ML
     Route: 042
     Dates: start: 20200718, end: 20201101
  8. DEXAMETHASONE. [Concomitant]
     Active Substance: DEXAMETHASONE
     Indication: PREMEDICATION
     Route: 048
     Dates: start: 20200718, end: 20201103
  9. GLIATAMIN [Concomitant]
     Active Substance: CHOLINE ALFOSCERATE
     Indication: ANEURYSM
     Route: 048
     Dates: start: 20200629
  10. DOCETAXEL. [Suspect]
     Active Substance: DOCETAXEL
     Indication: BREAST CANCER
     Dosage: 144.75 MG
     Route: 042
     Dates: start: 20200718, end: 20200718
  11. DOCETAXEL. [Suspect]
     Active Substance: DOCETAXEL
     Route: 042
     Dates: start: 20200829, end: 20201101
  12. GASTER INJECTION [Concomitant]
     Route: 042
     Dates: start: 20200718, end: 20201101
  13. NASERON [Concomitant]
     Active Substance: RAMOSETRON HYDROCHLORIDE
     Indication: CHEMOTHERAPY
     Dosage: 0.3 MG/ 2ML
     Route: 042
     Dates: start: 20200718, end: 20201101
  14. GASTER [Concomitant]
     Active Substance: FAMOTIDINE
     Indication: CHEMOTHERAPY
     Route: 048
     Dates: start: 20200718
  15. NEOPLATIN [CARBOPLATIN] [Concomitant]
     Indication: BREAST CANCER
     Route: 042
     Dates: start: 20200829, end: 20201101
  16. PENIRAMIN [Concomitant]
     Indication: CHEMOTHERAPY
     Dosage: 4 MG/2ML
     Route: 042
     Dates: start: 20200718, end: 20201101
  17. TATHION [Concomitant]
     Active Substance: GLUTATHIONE
     Route: 042
     Dates: start: 20200718, end: 20200719
  18. CILOSTAN CR [Concomitant]
     Indication: ANEURYSM
     Route: 048
  19. AMARYL [Concomitant]
     Active Substance: GLIMEPIRIDE
     Indication: DIABETES MELLITUS
     Dosage: 2/500MG
     Route: 048
  20. NEOPLATIN [CARBOPLATIN] [Concomitant]
     Route: 042
     Dates: start: 20200808, end: 20200808
  21. NASEA OD [Concomitant]
     Active Substance: RAMOSETRON HYDROCHLORIDE
     Route: 048
     Dates: start: 20200718, end: 20201101
  22. PERTUZUMAB. [Suspect]
     Active Substance: PERTUZUMAB
     Indication: BREAST CANCER
     Dosage: ONGOING
     Route: 042
     Dates: start: 20200718, end: 20200718
  23. GASTER [Concomitant]
     Active Substance: FAMOTIDINE
     Route: 048
     Dates: start: 20200717, end: 20200719
  24. NEULASTA [Concomitant]
     Active Substance: PEGFILGRASTIM
     Dosage: 6 MG/0.6ML
     Route: 058
     Dates: start: 20200719, end: 20201102
  25. PERTUZUMAB. [Suspect]
     Active Substance: PERTUZUMAB
     Dosage: DATE OF TREATMENT: 29/AUG/2020, 18/SEP/2020, 11/NOV/2020, 01/NOV/2020, 28/DEC/2020, 19/JAN/2021
     Route: 042
     Dates: start: 20200808
  26. SAMFENET [Suspect]
     Active Substance: TRASTUZUMAB
     Route: 042
     Dates: start: 20201228, end: 20201228
  27. LIPILOU [Concomitant]
     Indication: HYPERTENSION
     Route: 048
  28. TELMITREND [Concomitant]
     Active Substance: TELMISARTAN
     Indication: HYPERTENSION
     Route: 048
  29. CARBOPLATIN. [Concomitant]
     Active Substance: CARBOPLATIN
     Indication: BREAST CANCER
     Route: 042
     Dates: start: 20200718, end: 20200718
  30. DOCETAXEL. [Suspect]
     Active Substance: DOCETAXEL
     Route: 042
     Dates: start: 20200808, end: 20200808
  31. STOGAR [Concomitant]
     Active Substance: LAFUTIDINE
     Route: 048
  32. BEAROBAN [Concomitant]
     Dates: start: 20200728, end: 20200804

REACTIONS (16)
  - Diarrhoea [Recovered/Resolved]
  - Palpitations [Recovered/Resolved]
  - Hypotension [Recovered/Resolved]
  - Dizziness [Recovered/Resolved]
  - Pruritus [Recovered/Resolved]
  - Dyspepsia [Recovered/Resolved]
  - Hypokalaemia [Recovered/Resolved]
  - Asthenia [Recovered/Resolved]
  - Anaemia [Recovering/Resolving]
  - Neutropenia [Recovered/Resolved]
  - Aspartate aminotransferase increased [Recovered/Resolved]
  - Nausea [Recovered/Resolved]
  - Pustule [Recovered/Resolved]
  - Diarrhoea [Recovered/Resolved]
  - Loss of consciousness [Recovered/Resolved]
  - Ectropion [Recovering/Resolving]

NARRATIVE: CASE EVENT DATE: 20200718
